FAERS Safety Report 10418466 (Version 1)
Quarter: 2014Q3

REPORT INFORMATION
  Report Type: Spontaneous
  Country: US (occurrence: US)
  Receive Date: 20140829
  Receipt Date: 20140829
  Transmission Date: 20150326
  Serious: No
  Sender: FDA-Public Use
  Company Number: US-VIIV HEALTHCARE LIMITED-A1054929A

PATIENT
  Age: 3 Year
  Sex: Female

DRUGS (4)
  1. NEVIRAPINE. [Concomitant]
     Active Substance: NEVIRAPINE
  2. MULTIVITAMIN [Concomitant]
     Active Substance: VITAMINS
  3. VIRAMUNE [Concomitant]
     Active Substance: NEVIRAPINE
  4. EPZICOM [Suspect]
     Active Substance: ABACAVIR SULFATE\LAMIVUDINE
     Indication: HIV INFECTION
     Dosage: .5TAB PER DAY
     Route: 048
     Dates: start: 200901

REACTIONS (1)
  - Off label use [Unknown]

NARRATIVE: CASE EVENT DATE: 200901
